FAERS Safety Report 13645245 (Version 1)
Quarter: 2017Q2

REPORT INFORMATION
  Report Type: Spontaneous
  Country: US (occurrence: US)
  Receive Date: 20170612
  Receipt Date: 20170612
  Transmission Date: 20170830
  Serious: No
  Sender: FDA-Public Use
  Company Number: US-ROCHE-1343013

PATIENT
  Sex: Female
  Weight: 61.29 kg

DRUGS (4)
  1. XELODA [Suspect]
     Active Substance: CAPECITABINE
     Dosage: TWICE IN A DAY (FOR 14 DAYS) ON THEN 7 DAYS OFF
     Route: 048
     Dates: start: 20140402
  2. XELODA [Suspect]
     Active Substance: CAPECITABINE
     Dosage: EVERY PM DAYS 1-14 EVERY 21 DAYS
     Route: 048
     Dates: start: 20140117
  3. XELODA [Suspect]
     Active Substance: CAPECITABINE
     Indication: COLON CANCER
     Dosage: EVERY AM DAYS 1-14 EVERY 21 DAYS
     Route: 048
     Dates: start: 20140117
  4. XELODA [Suspect]
     Active Substance: CAPECITABINE
     Route: 048
     Dates: start: 20140118

REACTIONS (6)
  - Erythema [Not Recovered/Not Resolved]
  - Headache [Not Recovered/Not Resolved]
  - Drug dose omission [Unknown]
  - Malaise [Unknown]
  - Paraesthesia [Not Recovered/Not Resolved]
  - Skin exfoliation [Unknown]
